FAERS Safety Report 23784775 (Version 1)
Quarter: 2024Q2

REPORT INFORMATION
  Report Type: Spontaneous
  Country: US (occurrence: US)
  Receive Date: 20240425
  Receipt Date: 20240425
  Transmission Date: 20240716
  Serious: Yes (Other)
  Sender: FDA-Public Use
  Company Number: US-JNJFOC-20240449238

PATIENT
  Age: 49 Year
  Sex: Female

DRUGS (5)
  1. STELARA [Suspect]
     Active Substance: USTEKINUMAB
     Indication: Colitis
     Route: 058
     Dates: start: 2023
  2. STELARA [Suspect]
     Active Substance: USTEKINUMAB
     Indication: Irritable bowel syndrome
  3. AGALSIDASE BETA [Suspect]
     Active Substance: AGALSIDASE BETA
     Indication: Fabry^s disease
     Dosage: 90 UNITS UNKNOWN
     Route: 042
     Dates: start: 20200109
  4. AGALSIDASE BETA [Suspect]
     Active Substance: AGALSIDASE BETA
     Dosage: 100 UNITS UNKNOWN
     Route: 042
  5. PREDNISONE [Concomitant]
     Active Substance: PREDNISONE

REACTIONS (7)
  - Colitis [Not Recovered/Not Resolved]
  - Fungal infection [Recovering/Resolving]
  - Hypersensitivity [Not Recovered/Not Resolved]
  - Hormone level abnormal [Not Recovered/Not Resolved]
  - Irritable bowel syndrome [Not Recovered/Not Resolved]
  - Therapy cessation [Unknown]
  - Therapeutic product effect decreased [Unknown]

NARRATIVE: CASE EVENT DATE: 20230101
